FAERS Safety Report 7240614-7 (Version None)
Quarter: 2011Q1

REPORT INFORMATION
  Report Type: 
  Country: None (occurrence: None)
  Receive Date: 20110124
  Receipt Date: 20110110
  Transmission Date: 20110831
  Serious: Yes (Hospitalization)
  Sender: FDA-Public Use
  Company Number: FR-SANOFI-AVENTIS-2011SA001377

PATIENT
  Age: 64 Year
  Sex: Male

DRUGS (11)
  1. FUMAFER [Suspect]
     Route: 048
  2. CALCIDOSE [Suspect]
     Route: 048
     Dates: end: 20101227
  3. DAFALGAN [Concomitant]
     Dates: end: 20101225
  4. LASIX [Suspect]
     Route: 048
  5. NOVOMIX [Suspect]
     Route: 058
  6. MOPRAL [Suspect]
     Route: 048
     Dates: start: 20101225, end: 20101227
  7. XATRAL [Suspect]
     Route: 048
  8. ROCEPHIN [Suspect]
     Dates: start: 20101225, end: 20101227
  9. NEBIVOLOL [Concomitant]
     Route: 048
  10. KARDEGIC [Concomitant]
     Route: 048
     Dates: end: 20101225
  11. SODIUM BICARBONATE [Suspect]

REACTIONS (2)
  - NEUTROPHIL COUNT DECREASED [None]
  - BICYTOPENIA [None]
